FAERS Safety Report 9319988 (Version 1)
Quarter: 2013Q2

REPORT INFORMATION
  Report Type: Spontaneous
  Country: US (occurrence: US)
  Receive Date: 20130530
  Receipt Date: 20130530
  Transmission Date: 20140414
  Serious: No
  Sender: FDA-Public Use
  Company Number: US-UPSHER-SMITH LABORATORIES, INC.-12002165

PATIENT
  Sex: Male

DRUGS (16)
  1. KLOR-CON TABLETS [Suspect]
     Indication: BLOOD POTASSIUM DECREASED
     Dosage: 0-2 TABLETS AS NEEDED PER ACTIVITY LEVEL, QD
     Route: 048
     Dates: start: 2008
  2. LANTUS [Concomitant]
     Dosage: UNK
  3. NOVOLOG [Concomitant]
     Dosage: UNK
  4. NOVOLOG MIX [Concomitant]
     Dosage: UNK
  5. METFORMIN [Concomitant]
     Dosage: UNK
  6. JANUVIA [Concomitant]
     Dosage: UNK
  7. ZETIA [Concomitant]
     Dosage: UNK
  8. GEMFIBROZIL [Concomitant]
     Dosage: UNK
  9. CHOLESTYRAMINE [Concomitant]
     Dosage: UNK
  10. ENALAPRIL [Concomitant]
     Dosage: UNK
  11. CARDIA [Concomitant]
     Dosage: UNK
  12. ALBUTEROL                          /00139501/ [Concomitant]
     Dosage: UNK
  13. MELOXICAM [Concomitant]
     Dosage: UNK
  14. FLUTICASONE [Concomitant]
     Dosage: UNK
  15. AMBIEN [Concomitant]
     Dosage: UNK
  16. TESTOSTERONE [Concomitant]
     Dosage: UNK
     Dates: start: 2012

REACTIONS (6)
  - Muscle spasms [Not Recovered/Not Resolved]
  - Medication residue present [Not Recovered/Not Resolved]
  - Drug dose omission [None]
  - Treatment noncompliance [None]
  - Incorrect dose administered [None]
  - Product substitution issue [None]
